FAERS Safety Report 8355733-1 (Version None)
Quarter: 2012Q2

REPORT INFORMATION
  Report Type: 
  Country: None (occurrence: None)
  Receive Date: 20120514
  Receipt Date: 20120509
  Transmission Date: 20120825
  Serious: No
  Sender: FDA-Public Use
  Company Number: US-PFIZER INC-2012041821

PATIENT
  Sex: Female
  Weight: 72.562 kg

DRUGS (18)
  1. AMLODIPINE [Concomitant]
     Indication: HYPERTENSION
     Dosage: 5 MG, DAILY
  2. IBUPROFEN (ADVIL) [Suspect]
     Indication: SPONDYLITIS
  3. ASPIRIN [Suspect]
     Indication: SPONDYLITIS
     Dosage: 81 MG, UNK
     Dates: end: 20120507
  4. ASPIRIN [Suspect]
     Indication: ARTHRITIS
  5. ALBUTEROL SULFATE [Concomitant]
     Dosage: UNK, AS NEEDED
  6. SINGULAIR [Concomitant]
     Indication: HYPERSENSITIVITY
     Dosage: UNK
  7. FISH OIL [Concomitant]
     Dosage: UNK, AS NEEDED
  8. VITAMIN D [Concomitant]
     Indication: VITAMIN D DECREASED
     Dosage: UNK
  9. ASTELIN [Concomitant]
     Dosage: UNK, AS NEEDED
  10. IBUPROFEN (ADVIL) [Suspect]
     Indication: ARTHRITIS
  11. IBUPROFEN [Suspect]
     Indication: ARTHRITIS
     Dosage: UNK
  12. IBUPROFEN (ADVIL) [Suspect]
     Indication: HEADACHE
     Dosage: UNK
     Route: 048
     Dates: start: 20120201, end: 20120507
  13. IBUPROFEN [Suspect]
     Indication: SPONDYLITIS
  14. LOPERAMIDE HYDROCHLORIDE [Concomitant]
     Indication: DIARRHOEA
     Dosage: UNK
  15. CALCIUM [Concomitant]
     Indication: CALCIUM DEFICIENCY
     Dosage: UNK
  16. CARVEDILOL [Concomitant]
     Indication: HYPERTENSION
     Dosage: 6.25 MG, 2X/DAY
  17. LUTEIN [Concomitant]
     Indication: EYE DISORDER
     Dosage: 12 MG, AS NEEDED
  18. SINGULAIR [Concomitant]
     Indication: ASTHMA

REACTIONS (4)
  - DIZZINESS [None]
  - DRUG INTOLERANCE [None]
  - DRUG INEFFECTIVE [None]
  - FATIGUE [None]
